FAERS Safety Report 9549561 (Version 1)
Quarter: 2013Q3

REPORT INFORMATION
  Report Type: Spontaneous
  Country: None (occurrence: None)
  Receive Date: 20130919
  Receipt Date: 20130919
  Transmission Date: 20140515
  Serious: Yes (Hospitalization)
  Sender: FDA-Public Use
  Company Number: 2013090030

PATIENT
  Age: 90 Year
  Sex: Female

DRUGS (6)
  1. TORASEMIDE [Suspect]
     Route: 048
     Dates: start: 20130101, end: 20130729
  2. TRINIPLAS (NITROGLYCERINE) [Concomitant]
  3. ATENOLOL [Concomitant]
  4. GABAPENTIN [Concomitant]
  5. SINTROM (ACENOCOUMAROL) [Concomitant]
  6. MICROSER (BETAHISTINE HYDROCHLORIDE) [Concomitant]

REACTIONS (3)
  - Hypokalaemia [None]
  - Hyponatraemia [None]
  - Vertigo [None]
